FAERS Safety Report 22367433 (Version 1)
Quarter: 2023Q2

REPORT INFORMATION
  Report Type: Spontaneous
  Country: FI (occurrence: FI)
  Receive Date: 20230525
  Receipt Date: 20230525
  Transmission Date: 20230721
  Serious: Yes (Life-Threatening)
  Sender: FDA-Public Use
  Company Number: None

PATIENT
  Age: 26 Year
  Sex: Female

DRUGS (2)
  1. OLANZAPINE [Suspect]
     Active Substance: OLANZAPINE
     Indication: Psychotic disorder
     Route: 065
     Dates: start: 2017, end: 201801
  2. ZYPREXA [Suspect]
     Active Substance: OLANZAPINE
     Indication: Psychotic disorder
     Route: 065
     Dates: start: 2017, end: 201801

REACTIONS (5)
  - Fluid retention [Recovered/Resolved]
  - Somnolence [Recovered/Resolved]
  - Near death experience [Recovered/Resolved]
  - Autophobia [Recovered/Resolved]
  - Weight increased [Recovered/Resolved]

NARRATIVE: CASE EVENT DATE: 20170101
